FAERS Safety Report 8408526 (Version 2)
Quarter: 2013Q4

REPORT INFORMATION
  Report Type: Spontaneous
  Country: US (occurrence: US)
  Receive Date: 20120216
  Receipt Date: 20131227
  Transmission Date: 20140711
  Serious: Yes (Other)
  Sender: FDA-Public Use
  Company Number: US-BAYER-2012-014291

PATIENT
  Age: 23 Year
  Sex: Female

DRUGS (6)
  1. YASMIN [Suspect]
     Dosage: UNK
     Dates: start: 2005, end: 200810
  2. OCELLA [Suspect]
     Dosage: UNK
     Dates: start: 2005, end: 200810
  3. XANAX [Concomitant]
     Dosage: UNK
     Dates: start: 20090909
  4. PROTONIX [Concomitant]
  5. OXYCODONE [Concomitant]
  6. ORTHO TRI-CYCLEN [Concomitant]

REACTIONS (6)
  - Gallbladder disorder [None]
  - Biliary dyskinesia [None]
  - Cholecystitis chronic [None]
  - Pain [None]
  - Anxiety [None]
  - Post cholecystectomy syndrome [None]
